FAERS Safety Report 11394759 (Version 3)
Quarter: 2016Q3

REPORT INFORMATION
  Report Type: Spontaneous
  Country: US (occurrence: US)
  Receive Date: 20150819
  Receipt Date: 20160826
  Transmission Date: 20161109
  Serious: Yes (Other)
  Sender: FDA-Public Use
  Company Number: US-BRISTOL-MYERS SQUIBB COMPANY-BMS-2015-054612

PATIENT
  Age: 81 Year
  Sex: Male
  Weight: 102 kg

DRUGS (2)
  1. ELIQUIS [Suspect]
     Active Substance: APIXABAN
     Dosage: UNK UNK, QD
     Route: 048
     Dates: start: 2014
  2. ELIQUIS [Suspect]
     Active Substance: APIXABAN
     Indication: CEREBROVASCULAR ACCIDENT PROPHYLAXIS
     Dosage: 2.5 MG, BID
     Route: 048
     Dates: start: 2014

REACTIONS (4)
  - Haemoptysis [Recovered/Resolved]
  - Epistaxis [Recovered/Resolved]
  - Prescribed underdose [Unknown]
  - Productive cough [Unknown]

NARRATIVE: CASE EVENT DATE: 20151119
